FAERS Safety Report 9174354 (Version 4)
Quarter: 2013Q2

REPORT INFORMATION
  Report Type: Report from Study
  Country: FR (occurrence: FR)
  Receive Date: 20130320
  Receipt Date: 20130515
  Transmission Date: 20140414
  Serious: Yes (Other)
  Sender: FDA-Public Use
  Company Number: FR-AMGEN-FRACT2013019146

PATIENT
  Age: 65 Year
  Sex: Male
  Weight: 79 kg

DRUGS (10)
  1. PANITUMUMAB [Suspect]
     Indication: TRANSITIONAL CELL CARCINOMA
     Dosage: 470 MG, UNK
     Route: 042
     Dates: start: 20120612, end: 20120612
  2. METHOTREXATE [Concomitant]
     Indication: TRANSITIONAL CELL CARCINOMA
     Dosage: 59 MG, UNK
     Route: 042
     Dates: start: 20120611
  3. ADRIBLASTINE [Concomitant]
     Indication: TRANSITIONAL CELL CARCINOMA
     Dosage: 59 MG, UNK
     Route: 042
     Dates: start: 20120612
  4. CISPLATINE [Concomitant]
     Indication: TRANSITIONAL CELL CARCINOMA
     Dosage: 138 MG, UNK
     Route: 042
     Dates: start: 20120612
  5. VELBE [Concomitant]
     Indication: TRANSITIONAL CELL CARCINOMA
     Dosage: 6 MG, UNK
     Route: 042
     Dates: start: 20120612
  6. FENTANYL [Concomitant]
     Dosage: 50 MG, QD
     Route: 048
  7. PARACETAMOL [Concomitant]
     Dosage: UNK UNK, QD
     Route: 048
  8. PREDNISOLONE [Concomitant]
     Dosage: 80 MG, QD
     Route: 048
  9. OMEPRAZOLE [Concomitant]
     Dosage: 20 MG, UNK
     Route: 048
  10. MORPHINE SULFATE [Concomitant]

REACTIONS (1)
  - Febrile bone marrow aplasia [Recovered/Resolved]
